FAERS Safety Report 7484769-8 (Version None)
Quarter: 2011Q2

REPORT INFORMATION
  Report Type: 
  Country: None (occurrence: None)
  Receive Date: 20110517
  Receipt Date: 20090310
  Transmission Date: 20111010
  Serious: Yes (Death, Other)
  Sender: FDA-Public Use
  Company Number: US-BAYER-2011-006285

PATIENT
  Age: 72 Year
  Sex: Male
  Weight: 74.1 kg

DRUGS (5)
  1. TRASYLOL [Suspect]
     Indication: MITRAL VALVE REPAIR
  2. ATENOLOL [Concomitant]
     Dosage: 50 MG, UNK
     Route: 048
     Dates: start: 20030101
  3. HYDROCHLOROTHIAZIDE [Concomitant]
     Dosage: UNK
     Route: 048
     Dates: start: 20030101
  4. TYLENOL W/ CODEINE [Concomitant]
     Dosage: UNK
     Route: 048
     Dates: start: 20030101
  5. TRASYLOL [Suspect]
     Indication: CORONARY ARTERY BYPASS
     Dosage: UNK
     Dates: start: 20051216

REACTIONS (11)
  - RENAL FAILURE [None]
  - RENAL INJURY [None]
  - DEATH [None]
  - RENAL IMPAIRMENT [None]
  - EMOTIONAL DISTRESS [None]
  - STRESS [None]
  - PAIN [None]
  - UNEVALUABLE EVENT [None]
  - INJURY [None]
  - ANXIETY [None]
  - FEAR [None]
